FAERS Safety Report 5939323-3 (Version None)
Quarter: 2008Q4

REPORT INFORMATION
  Report Type: 
  Country: None (occurrence: None)
  Receive Date: 20081103
  Receipt Date: 20081022
  Transmission Date: 20090506
  Serious: Yes (Other)
  Sender: FDA-Public Use
  Company Number: US-PFIZER INC-2008089793

PATIENT
  Sex: Female

DRUGS (1)
  1. LYRICA [Suspect]
     Indication: PHARYNGITIS
     Dates: start: 20060101

REACTIONS (2)
  - ANTINUCLEAR ANTIBODY POSITIVE [None]
  - SJOGREN'S SYNDROME [None]
